FAERS Safety Report 20090488 (Version 3)
Quarter: 2022Q1

REPORT INFORMATION
  Report Type: Spontaneous
  Country: US (occurrence: US)
  Receive Date: 20211119
  Receipt Date: 20220214
  Transmission Date: 20220424
  Serious: Yes (Other)
  Sender: FDA-Public Use
  Company Number: US-APOTEX-2021AP045345

PATIENT
  Sex: Female

DRUGS (3)
  1. NICOTINE [Suspect]
     Active Substance: NICOTINE
     Indication: Smoking cessation therapy
     Dosage: 1 DOSAGE FORM, QD
     Route: 062
     Dates: start: 20211021, end: 20211022
  2. GABAPENTIN [Concomitant]
     Active Substance: GABAPENTIN
     Indication: Headache
     Dosage: 1 DOSAGE FORM, QD
     Route: 065
  3. SUBOXONE [Concomitant]
     Active Substance: BUPRENORPHINE HYDROCHLORIDE\NALOXONE HYDROCHLORIDE
     Indication: Drug dependence
     Dosage: UNK, QD
     Route: 060

REACTIONS (11)
  - Neuropathy peripheral [Not Recovered/Not Resolved]
  - Application site pain [Not Recovered/Not Resolved]
  - Sensory loss [Not Recovered/Not Resolved]
  - Chest pain [Not Recovered/Not Resolved]
  - Anxiety [Not Recovered/Not Resolved]
  - Skin indentation [Not Recovered/Not Resolved]
  - Skin discolouration [Not Recovered/Not Resolved]
  - Headache [Not Recovered/Not Resolved]
  - Nausea [Not Recovered/Not Resolved]
  - Fatigue [Not Recovered/Not Resolved]
  - Limb deformity [Unknown]

NARRATIVE: CASE EVENT DATE: 20210101
